FAERS Safety Report 19706084 (Version 2)
Quarter: 2022Q3

REPORT INFORMATION
  Report Type: Spontaneous
  Country: US (occurrence: US)
  Receive Date: 20210817
  Receipt Date: 20220822
  Transmission Date: 20221026
  Serious: No
  Sender: FDA-Public Use
  Company Number: US-BAUSCH-BL-2021-024634

PATIENT
  Sex: Female

DRUGS (2)
  1. VYZULTA [Suspect]
     Active Substance: LATANOPROSTENE BUNOD
     Indication: Glaucoma
     Route: 047
  2. SIMBRINZA [Suspect]
     Active Substance: BRIMONIDINE TARTRATE\BRINZOLAMIDE
     Indication: Product used for unknown indication
     Route: 065

REACTIONS (6)
  - Hypotension [Unknown]
  - Instillation site lacrimation [Recovering/Resolving]
  - Visual impairment [Not Recovered/Not Resolved]
  - Instillation site erythema [Recovering/Resolving]
  - Instillation site pain [Unknown]
  - Product label issue [Unknown]
